FAERS Safety Report 5927885-1 (Version None)
Quarter: 2008Q4

REPORT INFORMATION
  Report Type: 
  Country: None (occurrence: None)
  Receive Date: 20081021
  Receipt Date: 20081016
  Transmission Date: 20090506
  Serious: Yes (Life-Threatening, Hospitalization)
  Sender: FDA-Public Use
  Company Number: 2008AL008164

PATIENT
  Age: 74 Year
  Sex: Male

DRUGS (2)
  1. DIGOXIN [Suspect]
     Indication: ATRIAL FIBRILLATION
     Dosage: 0.125MG, DAILY, PO
     Route: 048
  2. DIGOXIN [Suspect]
     Indication: LEFT VENTRICULAR DYSFUNCTION
     Dosage: 0.125MG, DAILY, PO
     Route: 048

REACTIONS (7)
  - CARDIOACTIVE DRUG LEVEL ABOVE THERAPEUTIC [None]
  - DIZZINESS [None]
  - LOSS OF CONSCIOUSNESS [None]
  - PHOTOPHOBIA [None]
  - SYNCOPE [None]
  - THERAPEUTIC AGENT TOXICITY [None]
  - VENTRICULAR FIBRILLATION [None]
